FAERS Safety Report 10543464 (Version 1)
Quarter: 2014Q4

REPORT INFORMATION
  Report Type: Spontaneous
  Country: GB (occurrence: GB)
  Receive Date: 20141027
  Receipt Date: 20141027
  Transmission Date: 20150529
  Serious: Yes (Life-Threatening, Disabling, Other)
  Sender: FDA-Public Use
  Company Number: GB-ACTAVIS-2014-22471

PATIENT
  Age: 45 Year
  Sex: Female

DRUGS (6)
  1. VOLTAROL [Concomitant]
     Active Substance: DICLOFENAC SODIUM
     Indication: PRODUCT USED FOR UNKNOWN INDICATION
     Dosage: UNK; EMUGEL 12 HOURS
     Route: 065
  2. BUTRANS [Concomitant]
     Active Substance: BUPRENORPHINE
     Indication: PRODUCT USED FOR UNKNOWN INDICATION
     Dosage: UNK
     Route: 065
  3. DICLOFENAC (UNKNOWN) [Suspect]
     Active Substance: DICLOFENAC SODIUM
     Indication: OSTEOARTHRITIS
     Dosage: 25 MG, TID
     Route: 048
     Dates: start: 20140611, end: 20140903
  4. ZOPICLONE [Concomitant]
     Active Substance: ZOPICLONE
     Indication: PRODUCT USED FOR UNKNOWN INDICATION
     Dosage: UNK
     Route: 065
  5. LANSOPRAZOL [Concomitant]
     Active Substance: LANSOPRAZOLE
     Indication: PRODUCT USED FOR UNKNOWN INDICATION
     Dosage: UNK
     Route: 065
  6. MOVICOL                            /01749801/ [Concomitant]
     Indication: PRODUCT USED FOR UNKNOWN INDICATION
     Dosage: UNK
     Route: 065

REACTIONS (33)
  - Abdominal distension [Recovering/Resolving]
  - Joint swelling [Recovering/Resolving]
  - Gait disturbance [Recovering/Resolving]
  - Abnormal dreams [Recovering/Resolving]
  - Chest discomfort [Recovered/Resolved]
  - Lip swelling [Recovered/Resolved]
  - Lymphadenopathy [Recovering/Resolving]
  - Mouth swelling [Recovering/Resolving]
  - Vision blurred [Recovering/Resolving]
  - Throat tightness [Recovered/Resolved with Sequelae]
  - Arthralgia [Recovering/Resolving]
  - Dyspepsia [Recovering/Resolving]
  - Vomiting [Recovered/Resolved]
  - Swelling face [Recovered/Resolved]
  - Hearing impaired [Unknown]
  - Memory impairment [Recovered/Resolved]
  - Muscle spasticity [Recovered/Resolved]
  - Feeling hot [Recovered/Resolved]
  - Condition aggravated [Recovered/Resolved]
  - Inflammation [Recovered/Resolved with Sequelae]
  - Depression [Recovered/Resolved with Sequelae]
  - Vision blurred [Recovered/Resolved]
  - Dyspnoea [Recovering/Resolving]
  - Chest crushing [Recovered/Resolved]
  - Swollen tongue [Not Recovered/Not Resolved]
  - Choking [Recovered/Resolved]
  - Confusional state [Recovering/Resolving]
  - Pulmonary pain [Recovering/Resolving]
  - Chest pain [Recovered/Resolved]
  - Mental impairment [Recovering/Resolving]
  - Sleep disorder [Recovered/Resolved]
  - Dysstasia [Recovered/Resolved with Sequelae]
  - Blepharospasm [Recovered/Resolved]

NARRATIVE: CASE EVENT DATE: 201406
